FAERS Safety Report 15262928 (Version 3)
Quarter: 2018Q3

REPORT INFORMATION
  Report Type: Spontaneous
  Country: IT (occurrence: IT)
  Receive Date: 20180810
  Receipt Date: 20180919
  Transmission Date: 20181010
  Serious: Yes (Other)
  Sender: FDA-Public Use
  Company Number: IT-AUROBINDO-AUR-APL-2018-040945

PATIENT
  Age: 61 Year
  Sex: Female

DRUGS (2)
  1. LEVOFLOXACIN. [Suspect]
     Active Substance: LEVOFLOXACIN
     Indication: ARTHROPOD BITE
     Dosage: 1 DOSAGE FORM, ONCE A DAY
     Route: 048
  2. LEVOFLOXACIN. [Suspect]
     Active Substance: LEVOFLOXACIN
     Dosage: 500 MILLIGRAM, ONCE A DAY
     Route: 048

REACTIONS (1)
  - Trichoglossia [Recovering/Resolving]

NARRATIVE: CASE EVENT DATE: 20180714
